FAERS Safety Report 14120328 (Version 2)
Quarter: 2017Q4

REPORT INFORMATION
  Report Type: Report from Study
  Country: US (occurrence: US)
  Receive Date: 20171024
  Receipt Date: 20171121
  Transmission Date: 20180321
  Serious: No
  Sender: FDA-Public Use
  Company Number: PHEH2017US033845

PATIENT
  Sex: Female

DRUGS (2)
  1. COSENTYX [Suspect]
     Active Substance: SECUKINUMAB
     Dosage: 300 MG, QMO
     Route: 058
  2. COSENTYX [Suspect]
     Active Substance: SECUKINUMAB
     Indication: PSORIASIS
     Dosage: 150 MG, QMO
     Route: 058

REACTIONS (10)
  - Fear of injection [Unknown]
  - Stab wound [Unknown]
  - Stress [Unknown]
  - Injection site erythema [Unknown]
  - Anxiety [Unknown]
  - Arthralgia [Unknown]
  - Contusion [Unknown]
  - Injection site pain [Unknown]
  - Nausea [Unknown]
  - Psoriasis [Unknown]
